FAERS Safety Report 8393870-6 (Version None)
Quarter: 2012Q2

REPORT INFORMATION
  Report Type: 
  Country: None (occurrence: None)
  Receive Date: 20120530
  Receipt Date: 20120521
  Transmission Date: 20120825
  Serious: Yes (Hospitalization)
  Sender: FDA-Public Use
  Company Number: US-BRISTOL-MYERS SQUIBB COMPANY-16499337

PATIENT
  Age: 63 Year
  Sex: Female

DRUGS (5)
  1. TOPROL-XL [Concomitant]
  2. PLAQUENIL [Concomitant]
  3. LISINOPRIL [Suspect]
     Indication: HYPERTENSION
     Dosage: 1DF=2 PILLS
  4. ORENCIA [Suspect]
     Indication: RHEUMATOID ARTHRITIS
     Dosage: 1DF=750-1000MG INF ON 21APR11, 29JUL11(1E64323,EXP:03/14) 1F107198,EXP MAY14
     Route: 042
     Dates: start: 20101208, end: 20111111
  5. SULFASALAZINE [Concomitant]

REACTIONS (6)
  - ADRENAL DISORDER [None]
  - WEIGHT DECREASED [None]
  - ROTATOR CUFF REPAIR [None]
  - FALL [None]
  - HAEMOGLOBIN DECREASED [None]
  - LOSS OF CONSCIOUSNESS [None]
